FAERS Safety Report 7622331-4 (Version None)
Quarter: 2011Q3

REPORT INFORMATION
  Report Type: 
  Country: None (occurrence: None)
  Receive Date: 20110720
  Receipt Date: 20101116
  Transmission Date: 20111222
  Serious: Yes (Other)
  Sender: FDA-Public Use
  Company Number: US-BAYER-200940508NA

PATIENT
  Age: 22 Year
  Sex: Male
  Weight: 77 kg

DRUGS (20)
  1. TRASYLOL [Suspect]
     Indication: PRODUCT USED FOR UNKNOWN INDICATION
     Dosage: UNK
     Route: 042
     Dates: start: 20001105
  2. WARFARIN SODIUM [Concomitant]
     Dosage: 5MG
     Route: 048
  3. FENTANYL-100 [Concomitant]
     Dosage: UNK
     Dates: start: 20001105
  4. VANCOMYCIN [Concomitant]
     Dosage: UNK
     Dates: start: 20001105
  5. FRESH FROZEN PLASMA [Concomitant]
     Dosage: UNK
     Dates: start: 19991104
  6. PLATELETS [Concomitant]
  7. LASIX [Concomitant]
     Dosage: 80MG
     Dates: start: 20001105
  8. TRASYLOL [Suspect]
     Indication: RENAL TRANSPLANT
     Dosage: APROTININ DRIP NOTED AT 50ML/HR ON ANESTHESIA RECORD.
     Route: 042
     Dates: start: 20001105, end: 20001105
  9. PREVACID [Concomitant]
     Dosage: 30MG
     Route: 048
  10. DIGOXIN [Concomitant]
     Dosage: 0.0625MG
     Route: 048
  11. HEPARIN [Concomitant]
     Dosage: UNK
     Dates: start: 20001105
  12. COREG [Concomitant]
     Dosage: 25MG
     Route: 048
  13. ZESTRIL [Concomitant]
     Dosage: 10 MG, QD
     Route: 048
  14. TRASYLOL [Suspect]
     Indication: HEART TRANSPLANT
  15. RED BLOOD CELLS [Concomitant]
     Dosage: UNK
     Dates: start: 19991104
  16. BUMEX [Concomitant]
     Dosage: 1MG
     Route: 048
  17. MANNITOL [Concomitant]
     Dosage: UNK
     Dates: start: 20001105
  18. PRAVACHOL [Concomitant]
     Dosage: 40MG
     Route: 048
  19. ACETYLSALICYLIC ACID SRT [Concomitant]
     Dosage: 325 MG, QD
     Route: 048
  20. AMIODARONE HCL [Concomitant]
     Dosage: 400MG
     Route: 048

REACTIONS (12)
  - STRESS [None]
  - ANXIETY [None]
  - PAIN [None]
  - RENAL INJURY [None]
  - FEAR [None]
  - RENAL IMPAIRMENT [None]
  - INJURY [None]
  - EMOTIONAL DISTRESS [None]
  - RENAL FAILURE [None]
  - UNEVALUABLE EVENT [None]
  - ANHEDONIA [None]
  - PSYCHIATRIC SYMPTOM [None]
